FAERS Safety Report 8680191 (Version 4)
Quarter: 2017Q4

REPORT INFORMATION
  Report Type: Spontaneous
  Country: US (occurrence: US)
  Receive Date: 20120724
  Receipt Date: 20171113
  Transmission Date: 20180321
  Serious: Yes (Hospitalization, Disabling, Other)
  Sender: FDA-Public Use
  Company Number: US-009507513-1207USA007175

PATIENT
  Sex: Female
  Weight: 48.07 kg

DRUGS (6)
  1. FOSAMAX PLUS D [Suspect]
     Active Substance: ALENDRONATE SODIUM\CHOLECALCIFEROL
     Indication: OSTEOPOROSIS
     Dosage: UNK, UNKNOWN
     Route: 048
     Dates: start: 199807, end: 2010
  2. ALENDRONATE SODIUM. [Suspect]
     Active Substance: ALENDRONATE SODIUM
     Dosage: 70 MG, UNK
     Route: 048
     Dates: start: 20080304, end: 20080529
  3. FOSAMAX [Suspect]
     Active Substance: ALENDRONATE SODIUM
     Dosage: 70 MG, UNK
     Route: 048
     Dates: end: 2010
  4. RECLAST [Suspect]
     Active Substance: ZOLEDRONIC ACID
     Dosage: UNK UNK, UNKNOWN
     Route: 065
     Dates: start: 199807, end: 2010
  5. FOSAMAX [Suspect]
     Active Substance: ALENDRONATE SODIUM
     Indication: OSTEOPOROSIS
     Dosage: 10 MG, UNK
     Route: 048
     Dates: start: 19980706, end: 200107
  6. FOSAMAX [Suspect]
     Active Substance: ALENDRONATE SODIUM
     Dosage: 70 MG, UNK
     Route: 048
     Dates: start: 20010720, end: 20050627

REACTIONS (11)
  - Femur fracture [Recovered/Resolved]
  - Bone density decreased [Unknown]
  - Biopsy bone abnormal [Unknown]
  - Anaemia postoperative [Unknown]
  - Thrombocytopenia [Unknown]
  - Rib fracture [Unknown]
  - Rheumatoid arthritis [Unknown]
  - Kyphosis [Unknown]
  - Lordosis [Unknown]
  - Leukopenia [Unknown]
  - Aortic calcification [Unknown]

NARRATIVE: CASE EVENT DATE: 2004
